FAERS Safety Report 4667159-2 (Version None)
Quarter: 2005Q2

REPORT INFORMATION
  Report Type: 
  Country: None (occurrence: None)
  Receive Date: 20050520
  Receipt Date: 20040614
  Transmission Date: 20051028
  Serious: Yes (Hospitalization, Other)
  Sender: FDA-Public Use
  Company Number: PHEH2004US06528

PATIENT
  Age: 77 Year
  Sex: Female

DRUGS (10)
  1. DECADRON [Concomitant]
     Dates: start: 20031101, end: 20040426
  2. TAXOTERE [Concomitant]
     Dosage: 70 G EVERY 3 WEEKS
     Dates: start: 20031103, end: 20040329
  3. XELODA [Concomitant]
     Dates: start: 20031103, end: 20040329
  4. ZOMETA [Suspect]
     Indication: METASTASES TO BONE
     Dosage: 4 MG MONTHLY
     Route: 042
     Dates: start: 20030910, end: 20040426
  5. ALPRAZOLAM [Concomitant]
  6. HYDROCODONE BITARTRATE [Concomitant]
  7. PROTONIX [Concomitant]
  8. NEURONTIN [Concomitant]
  9. POTASSIUM CHLORIDE [Concomitant]
  10. HYOSCYAMINE [Concomitant]

REACTIONS (18)
  - ABDOMINAL PAIN UPPER [None]
  - ACTINOMYCOSIS [None]
  - ANAEMIA [None]
  - APTYALISM [None]
  - BONE DEBRIDEMENT [None]
  - BONE DISORDER [None]
  - DENTAL CARIES [None]
  - FREQUENT BOWEL MOVEMENTS [None]
  - GINGIVAL PAIN [None]
  - NAUSEA [None]
  - OSTEOMYELITIS [None]
  - OSTEONECROSIS [None]
  - PAIN [None]
  - PURULENCE [None]
  - SWELLING FACE [None]
  - TONGUE ULCERATION [None]
  - TOOTH EXTRACTION [None]
  - TRISMUS [None]
